FAERS Safety Report 19153120 (Version 2)
Quarter: 2021Q2

REPORT INFORMATION
  Report Type: Spontaneous
  Country: CZ (occurrence: CZ)
  Receive Date: 20210419
  Receipt Date: 20210517
  Transmission Date: 20210717
  Serious: Yes (Other)
  Sender: FDA-Public Use
  Company Number: CZ-ASTELLAS-2021US013925

PATIENT
  Age: 70 Year
  Sex: Male

DRUGS (2)
  1. DIPHERELINE [TRIPTORELIN ACETATE] [Concomitant]
     Indication: HORMONE-REFRACTORY PROSTATE CANCER
     Dosage: UNK UNK, UNKNOWN FREQ.
     Route: 065
     Dates: start: 2017
  2. ENZALUTAMIDE [Suspect]
     Active Substance: ENZALUTAMIDE
     Indication: HORMONE-REFRACTORY PROSTATE CANCER
     Route: 065
     Dates: start: 201712, end: 2020

REACTIONS (9)
  - Weight decreased [Recovered/Resolved]
  - Dyspepsia [Recovered/Resolved]
  - General physical health deterioration [Recovered/Resolved]
  - Polyarthritis [Recovered/Resolved]
  - Dyspnoea [Recovered/Resolved]
  - Frequent bowel movements [Recovered/Resolved]
  - Asthenia [Recovered/Resolved]
  - Decreased appetite [Recovered/Resolved]
  - Fatigue [Recovered/Resolved]

NARRATIVE: CASE EVENT DATE: 202002
